FAERS Safety Report 6094602-7 (Version None)
Quarter: 2009Q1

REPORT INFORMATION
  Report Type: 
  Country: None (occurrence: None)
  Receive Date: 20090226
  Receipt Date: 20090216
  Transmission Date: 20090719
  Serious: Yes (Other)
  Sender: FDA-Public Use
  Company Number: PHHY2007MX00748

PATIENT
  Sex: Female

DRUGS (1)
  1. DIOVAN [Suspect]
     Indication: HYPERTENSION
     Dosage: 1TABLET (320)MG/DAY
     Route: 048
     Dates: start: 20050413

REACTIONS (4)
  - BLOOD PRESSURE INCREASED [None]
  - CARDIOMEGALY [None]
  - EMPHYSEMA [None]
  - SINUSITIS [None]
